FAERS Safety Report 5858863-9 (Version None)
Quarter: 2008Q3

REPORT INFORMATION
  Report Type: 
  Country: None (occurrence: None)
  Receive Date: 20080826
  Receipt Date: 20080812
  Transmission Date: 20090109
  Serious: Yes (Hospitalization)
  Sender: FDA-Public Use
  Company Number: BR-MERCK-0808BRA00024

PATIENT

DRUGS (1)
  1. VYTORIN [Suspect]
     Route: 065

REACTIONS (3)
  - BLOOD CREATINE PHOSPHOKINASE ABNORMAL [None]
  - BLOOD CREATINE PHOSPHOKINASE MB ABNORMAL [None]
  - LIVER DISORDER [None]
